FAERS Safety Report 11211916 (Version 2)
Quarter: 2015Q3

REPORT INFORMATION
  Report Type: Spontaneous
  Country: US (occurrence: US)
  Receive Date: 20150623
  Receipt Date: 20150707
  Transmission Date: 20151125
  Serious: Yes (Other)
  Sender: FDA-Public Use
  Company Number: US-BAYER-2015-351422

PATIENT
  Sex: Female

DRUGS (1)
  1. SKYLA [Suspect]
     Active Substance: LEVONORGESTREL
     Dosage: 14 MCG/24HR, CONT
     Route: 015
     Dates: start: 201505

REACTIONS (6)
  - Genital haemorrhage [Recovering/Resolving]
  - Abdominal pain lower [Recovering/Resolving]
  - Back pain [Not Recovered/Not Resolved]
  - Device dislocation [Not Recovered/Not Resolved]
  - Vaginal haemorrhage [None]
  - Off label use of device [None]

NARRATIVE: CASE EVENT DATE: 2015
